FAERS Safety Report 7438215-0 (Version None)
Quarter: 2011Q2

REPORT INFORMATION
  Report Type: 
  Country: None (occurrence: None)
  Receive Date: 20110426
  Receipt Date: 20110328
  Transmission Date: 20111010
  Serious: Yes (Hospitalization, Other)
  Sender: FDA-Public Use
  Company Number: US-BAYER-200932901NA

PATIENT
  Age: 26 Year
  Sex: Female
  Weight: 54.422 kg

DRUGS (8)
  1. YAZ [Suspect]
     Indication: ACNE
     Route: 048
     Dates: start: 20090812, end: 20090910
  2. YAZ [Suspect]
     Indication: CONTRACEPTION
  3. IBUPROFEN (ADVIL) [Concomitant]
     Indication: HEADACHE
  4. BENADRYL [Concomitant]
     Indication: URTICARIA
  5. IBUPROFEN [Concomitant]
     Dosage: UNK UNK, PRN
  6. ACETAMINOPHEN [Concomitant]
     Indication: HEADACHE
  7. DIETARY SUPPLEMENTS NOS [Concomitant]
  8. VITAMINS [Concomitant]

REACTIONS (9)
  - HYPOAESTHESIA [None]
  - CARDIAC SEPTAL DEFECT REPAIR [None]
  - VITAMIN B12 DEFICIENCY [None]
  - MIGRAINE [None]
  - CEREBROVASCULAR ACCIDENT [None]
  - DYSARTHRIA [None]
  - DROOLING [None]
  - VIITH NERVE PARALYSIS [None]
  - NIGHT BLINDNESS [None]
